FAERS Safety Report 17418887 (Version 1)
Quarter: 2020Q1

REPORT INFORMATION
  Report Type: Spontaneous
  Country: JP (occurrence: JP)
  Receive Date: 20200214
  Receipt Date: 20200214
  Transmission Date: 20200409
  Serious: Yes (Hospitalization, Other)
  Sender: FDA-Public Use
  Company Number: JP-ACCORD-172358

PATIENT
  Age: 34 Year
  Sex: Male
  Weight: 64 kg

DRUGS (3)
  1. BLEOMYCIN [Concomitant]
     Active Substance: BLEOMYCIN SULFATE
     Indication: SEMINOMA
     Dosage: TOTAL DOSE: 20 MG/M^2, DAY 1-5
  2. ETOPOSIDE. [Concomitant]
     Active Substance: ETOPOSIDE
     Indication: SEMINOMA
     Dosage: TOTAL DOSE: 100 MG/M^2, DAY 1-5
  3. CISPLATIN. [Suspect]
     Active Substance: CISPLATIN
     Indication: SEMINOMA
     Dosage: TOTAL DOSE: 30 MG/M^2, DAY 1, 8, 15

REACTIONS (1)
  - Arteriospasm coronary [Recovered/Resolved]
